FAERS Safety Report 19905749 (Version 1)
Quarter: 2021Q3

REPORT INFORMATION
  Report Type: Spontaneous
  Country: CA (occurrence: CA)
  Receive Date: 20210930
  Receipt Date: 20210930
  Transmission Date: 20211014
  Serious: Yes (Hospitalization)
  Sender: FDA-Public Use
  Company Number: CA-TEVA-2021-CA-1958377

PATIENT
  Age: 8 Year
  Sex: Male

DRUGS (6)
  1. VINCRISTINE SULFATE INJECTION [Suspect]
     Active Substance: VINCRISTINE SULFATE
     Route: 065
  2. CYTARABINE INJECTION [Suspect]
     Active Substance: CYTARABINE
     Route: 065
  3. LANVIS [Suspect]
     Active Substance: THIOGUANINE ANHYDROUS
     Route: 065
  4. PROCYTOX [Suspect]
     Active Substance: CYCLOPHOSPHAMIDE
     Route: 065
  5. ATRIANCE [Suspect]
     Active Substance: NELARABINE
     Route: 065
  6. ONCASPAR [Suspect]
     Active Substance: PEGASPARGASE
     Route: 065

REACTIONS (2)
  - Pyrexia [Unknown]
  - Neutropenia [Unknown]
